FAERS Safety Report 11071900 (Version 1)
Quarter: 2015Q2

REPORT INFORMATION
  Report Type: Spontaneous
  Country: IT (occurrence: None)
  Receive Date: 20150424
  Receipt Date: 20150424
  Transmission Date: 20150821
  Serious: Yes (Other)
  Sender: FDA-Public Use
  Company Number: 8022273

PATIENT
  Age: 74 Year
  Sex: Female

DRUGS (1)
  1. EUTIROX (LEVOTHYROXINE SODIUM) [Suspect]
     Active Substance: LEVOTHYROXINE SODIUM
     Indication: HYPOTHYROIDISM
     Dosage: 1 UNIT. (1 IN 1 D), ORAL
     Route: 048
     Dates: start: 20150101, end: 20150330

REACTIONS (3)
  - Palpitations [None]
  - Atrial fibrillation [None]
  - Presyncope [None]

NARRATIVE: CASE EVENT DATE: 20150330
